FAERS Safety Report 12788452 (Version 1)
Quarter: 2016Q3

REPORT INFORMATION
  Report Type: Spontaneous
  Country: US (occurrence: US)
  Receive Date: 20160928
  Receipt Date: 20160928
  Transmission Date: 20161109
  Serious: No
  Sender: FDA-Public Use
  Company Number: None

PATIENT
  Age: 76 Year
  Sex: Female
  Weight: 59.42 kg

DRUGS (5)
  1. ALENDRONATE SODIUM - 70MGM [Suspect]
     Active Substance: ALENDRONATE SODIUM
     Indication: OSTEOPENIA
     Dosage: 1 PILL 1X A WEEK BY MOUTH
     Route: 048
     Dates: end: 201606
  2. ATENOLOL. [Concomitant]
     Active Substance: ATENOLOL
  3. LOSARTIN [Concomitant]
     Active Substance: LOSARTAN
  4. FOLIC ACID. [Concomitant]
     Active Substance: FOLIC ACID
  5. PROCRIT [Concomitant]
     Active Substance: ERYTHROPOIETIN

REACTIONS (2)
  - Atrial fibrillation [None]
  - Osteonecrosis of jaw [None]

NARRATIVE: CASE EVENT DATE: 20160613
